FAERS Safety Report 20118099 (Version 1)
Quarter: 2021Q4

REPORT INFORMATION
  Report Type: Spontaneous
  Country: US (occurrence: US)
  Receive Date: 20211126
  Receipt Date: 20211126
  Transmission Date: 20220303
  Serious: Yes (Other)
  Sender: FDA-Public Use
  Company Number: US-PURDUE-USA-2020-0203824

PATIENT
  Sex: Male

DRUGS (3)
  1. MS CONTIN [Suspect]
     Active Substance: MORPHINE SULFATE
     Indication: Rib fracture
     Dosage: UNK
     Route: 048
     Dates: start: 2017
  2. MORPHINE SULFATE [Suspect]
     Active Substance: MORPHINE SULFATE
     Indication: Rib fracture
     Dosage: UNK
     Route: 048
     Dates: start: 2017
  3. ACETAMINOPHEN\OXYCODONE HYDROCHLORIDE [Suspect]
     Active Substance: ACETAMINOPHEN\OXYCODONE HYDROCHLORIDE
     Indication: Product used for unknown indication
     Dosage: UNK
     Route: 048

REACTIONS (3)
  - Drug dependence [Unknown]
  - Overdose [Unknown]
  - Hypersensitivity [Unknown]
